FAERS Safety Report 4517310-X (Version None)
Quarter: 2004Q4

REPORT INFORMATION
  Report Type: 
  Country: None (occurrence: None)
  Receive Date: 20041008
  Receipt Date: 20040623
  Transmission Date: 20050328
  Serious: No
  Sender: FDA-Public Use
  Company Number: 2004S1000133

PATIENT
  Sex: Female

DRUGS (2)
  1. CUBICIN [Suspect]
     Indication: OSTEOMYELITIS
     Dosage: 480 MG; Q24H; IV
     Route: 042
     Dates: start: 20040607
  2. VANCOMYCIN [Concomitant]

REACTIONS (1)
  - INJECTION SITE BURNING [None]
